FAERS Safety Report 20135353 (Version 1)
Quarter: 2021Q4

REPORT INFORMATION
  Report Type: Spontaneous
  Country: ES (occurrence: ES)
  Receive Date: 20211201
  Receipt Date: 20211201
  Transmission Date: 20220303
  Serious: Yes (Other)
  Sender: FDA-Public Use
  Company Number: None

PATIENT
  Age: 51 Year
  Sex: Female

DRUGS (6)
  1. NILOTINIB [Suspect]
     Active Substance: NILOTINIB
     Indication: Chronic myeloid leukaemia
     Dosage: 300 MG, (C/12 H)
     Route: 048
     Dates: start: 20191201
  2. FAMOTIDINA NORMON [Concomitant]
     Indication: Dyspepsia
     Dosage: 20 MG, (CE)
     Route: 048
     Dates: start: 20200831
  3. PULMICORT TURBUHALER [Concomitant]
     Active Substance: BUDESONIDE
     Indication: Bronchitis chronic
     Dosage: 200 UG (MCG C/12 H)
     Route: 050
     Dates: start: 20140521
  4. ATROVENT [Concomitant]
     Active Substance: IPRATROPIUM BROMIDE
     Indication: Bronchitis chronic
     Dosage: 40 UG (MCG C/8 HORAS)
     Route: 050
     Dates: start: 20140521
  5. SERETIDE [Concomitant]
     Active Substance: FLUTICASONE PROPIONATE\SALMETEROL XINAFOATE
     Indication: Bronchitis chronic
     Dosage: UNK, (2.0 PUFF C/12 H STRENGTH: 25 MICROGRAMOS/250 MICROGRAMOS)
     Route: 050
     Dates: start: 20190516
  6. SALBUTAMOL ^ALDO UNION^ [Concomitant]
     Indication: Bronchitis chronic
     Dosage: 100 UG (MCG C/8 HORAS)
     Route: 050
     Dates: start: 20150527

REACTIONS (2)
  - Xanthelasma [Recovering/Resolving]
  - Chest pain [Recovering/Resolving]

NARRATIVE: CASE EVENT DATE: 20211004
